FAERS Safety Report 10176188 (Version 1)
Quarter: 2014Q2

REPORT INFORMATION
  Report Type: Spontaneous
  Country: US (occurrence: None)
  Receive Date: 20140514
  Receipt Date: 20140514
  Transmission Date: 20141212
  Serious: Yes (Hospitalization)
  Sender: FDA-Public Use
  Company Number: CIO14033550

PATIENT
  Age: 64 Year
  Sex: Female

DRUGS (8)
  1. OXYMETAZOLINE NASAL SPRAY [Suspect]
     Indication: NASAL CONGESTION
     Route: 045
  2. AZITHROMYCIN (AZITHROMYCIN) [Concomitant]
  3. MOMETASONE (MOMETASONE) [Concomitant]
  4. METFORMIN (METFORMIN) [Concomitant]
  5. NATEGLINIDE (NATEGLINIDE) [Concomitant]
  6. ATORVASTATIN (ATORVASTATIN) [Concomitant]
  7. TRIAMTERENE (TRIAMTERENE) [Concomitant]
  8. LOSARTAN (LOSARTAN) [Concomitant]

REACTIONS (6)
  - Acute myocardial infarction [None]
  - Nausea [None]
  - Vomiting [None]
  - Bundle branch block right [None]
  - Hypertension [None]
  - Oxygen consumption increased [None]
